APPROVED DRUG PRODUCT: TRIAMCINOLONE ACETONIDE
Active Ingredient: TRIAMCINOLONE ACETONIDE
Strength: 0.1%
Dosage Form/Route: PASTE;DENTAL
Application: A040771 | Product #001 | TE Code: AT
Applicant: RISING PHARMA HOLDINGS INC
Approved: Jul 1, 2010 | RLD: No | RS: No | Type: RX